FAERS Safety Report 14363504 (Version 1)
Quarter: 2018Q1

REPORT INFORMATION
  Report Type: Spontaneous
  Country: CA (occurrence: US)
  Receive Date: 20180105
  Receipt Date: 20180105
  Transmission Date: 20180509
  Serious: Yes (Hospitalization)
  Sender: FDA-Public Use
  Company Number: None

PATIENT
  Age: 73 Year
  Sex: Male
  Weight: 64.5 kg

DRUGS (1)
  1. MEMANTINE HYDROCHLORIDE. [Suspect]
     Active Substance: MEMANTINE HYDROCHLORIDE
     Dates: end: 20180102

REACTIONS (9)
  - Metastases to soft tissue [None]
  - Confusional state [None]
  - Condition aggravated [None]
  - Muscular weakness [None]
  - Spinal cord compression [None]
  - Dyspnoea [None]
  - Back pain [None]
  - Metastases to spine [None]
  - Productive cough [None]

NARRATIVE: CASE EVENT DATE: 20171228
